FAERS Safety Report 25214599 (Version 2)
Quarter: 2025Q2

REPORT INFORMATION
  Report Type: Spontaneous
  Country: CN (occurrence: CN)
  Receive Date: 20250418
  Receipt Date: 20250422
  Transmission Date: 20250717
  Serious: Yes (Hospitalization, Other)
  Sender: PFIZER
  Company Number: CN-MLMSERVICE-20250410-PI468223-00271-2

PATIENT
  Age: 59 Year
  Sex: Female

DRUGS (8)
  1. METHYLPREDNISOLONE [Suspect]
     Active Substance: METHYLPREDNISOLONE
     Indication: Thrombocytopenic purpura
     Dosage: 80 MG, 1X/DAY (WITH A TAPERED DOSE REDUCTION EVERY 3 DAYS)
     Dates: start: 202402, end: 2024
  2. METHYLPREDNISOLONE [Suspect]
     Active Substance: METHYLPREDNISOLONE
     Indication: Systemic lupus erythematosus
     Dosage: 60 MG, 1X/DAY (WITH A TAPERED DOSE REDUCTION EVERY 3 DAYS)
     Dates: start: 2024, end: 2024
  3. METHYLPREDNISOLONE [Suspect]
     Active Substance: METHYLPREDNISOLONE
     Indication: Thrombocytopenia
     Dosage: 40 MG, 1X/DAY
     Dates: start: 2024
  4. PREDNISONE [Suspect]
     Active Substance: PREDNISONE
     Indication: Thrombocytopenic purpura
     Dosage: 25 MG, 2X/DAY
     Route: 048
  5. PREDNISONE [Suspect]
     Active Substance: PREDNISONE
     Indication: Systemic lupus erythematosus
     Dosage: 20 MG, 2X/DAY (TWO WEEKS LATER, SHE BEGAN A WEEKLY REDUCTION OF PREDNISONE BY 5 MG)
     Dates: start: 2024, end: 2024
  6. CYCLOSPORINE [Suspect]
     Active Substance: CYCLOSPORINE
     Indication: Thrombocytopenic purpura
     Dosage: 75 MG, 2X/DAY
  7. CYCLOSPORINE [Suspect]
     Active Substance: CYCLOSPORINE
     Indication: Thrombocytopenic purpura
     Dosage: 50 MG, 2X/DAY
     Dates: start: 2024
  8. CYCLOSPORINE [Suspect]
     Active Substance: CYCLOSPORINE
     Indication: Thrombocytopenia

REACTIONS (3)
  - T-cell lymphoma [Recovering/Resolving]
  - Epstein-Barr virus associated lymphoproliferative disorder [Recovering/Resolving]
  - Langerhans^ cell histiocytosis [Recovering/Resolving]

NARRATIVE: CASE EVENT DATE: 20240101
